FAERS Safety Report 5081621-2 (Version None)
Quarter: 2006Q3

REPORT INFORMATION
  Report Type: 
  Country: None (occurrence: None)
  Receive Date: 20060810
  Receipt Date: 20060811
  Transmission Date: 20061208
  Serious: Yes (Other)
  Sender: FDA-Public Use
  Company Number: 2006ADE/DICLO-015

PATIENT
  Age: 77 Year
  Sex: Female

DRUGS (3)
  1. DICLOFENAC-RATIOPHARM, 75 SL [Suspect]
     Indication: NEURITIS
     Dosage: 150MG, DAILY, ORAL
     Route: 048
     Dates: start: 20060509, end: 20060511
  2. DILTIAZEM HCL [Concomitant]
  3. METFORMIN [Concomitant]

REACTIONS (4)
  - ABDOMINAL PAIN [None]
  - DIARRHOEA HAEMORRHAGIC [None]
  - INTESTINAL HAEMORRHAGE [None]
  - INTESTINAL ULCER [None]
